FAERS Safety Report 16461092 (Version 1)
Quarter: 2019Q2

REPORT INFORMATION
  Report Type: Spontaneous
  Country: FR (occurrence: FR)
  Receive Date: 20190621
  Receipt Date: 20190621
  Transmission Date: 20190711
  Serious: Yes (Hospitalization)
  Sender: FDA-Public Use
  Company Number: FR-SUN PHARMACEUTICAL INDUSTRIES LTD-2019RR-211106

PATIENT
  Age: 42 Year
  Sex: Male

DRUGS (3)
  1. TRAMADOL. [Suspect]
     Active Substance: TRAMADOL
     Indication: ARTHRITIS
     Dosage: ()
     Route: 048
     Dates: start: 20160924, end: 20161003
  2. DALACINE [Suspect]
     Active Substance: CLINDAMYCIN
     Indication: ARTHRITIS
     Dosage: ()
     Route: 048
     Dates: start: 20160924, end: 20161003
  3. LOVENOX [Suspect]
     Active Substance: ENOXAPARIN SODIUM
     Indication: ARTHRITIS
     Dosage: ()
     Route: 058
     Dates: start: 20160924, end: 20160930

REACTIONS (1)
  - Vascular purpura [Recovered/Resolved]

NARRATIVE: CASE EVENT DATE: 20161001
